FAERS Safety Report 6078662-5 (Version None)
Quarter: 2009Q1

REPORT INFORMATION
  Report Type: 
  Country: None (occurrence: None)
  Receive Date: 20090216
  Receipt Date: 20090211
  Transmission Date: 20090719
  Serious: Yes (Death, Other)
  Sender: FDA-Public Use
  Company Number: PHHY2009BR04971

PATIENT
  Age: 84 Year
  Sex: Female

DRUGS (2)
  1. MIACALCIN [Suspect]
     Dosage: 100UI/DAY FOR 5 DAYS IN THE FIRST WEEK
  2. MIACALCIN [Suspect]
     Dosage: 50 UL, QW

REACTIONS (2)
  - ASTHENIA [None]
  - DEATH [None]
